FAERS Safety Report 4788675-9 (Version None)
Quarter: 2005Q4

REPORT INFORMATION
  Report Type: 
  Country: None (occurrence: None)
  Receive Date: 20051005
  Receipt Date: 20050620
  Transmission Date: 20060501
  Serious: Yes (Hospitalization, Disabling)
  Sender: FDA-Public Use
  Company Number: US-MERCK-0506USA03198

PATIENT
  Age: 51 Year
  Sex: Male
  Weight: 77 kg

DRUGS (4)
  1. VIOXX [Suspect]
     Indication: NECK PAIN
     Route: 048
     Dates: start: 20010803, end: 20010814
  2. VIOXX [Suspect]
     Indication: HEADACHE
     Route: 048
     Dates: start: 20010803, end: 20010814
  3. SERZONE [Concomitant]
     Indication: DEPRESSION
     Route: 065
     Dates: start: 19940101, end: 20040101
  4. SERZONE [Concomitant]
     Indication: ANXIETY
     Route: 065
     Dates: start: 19940101, end: 20040101

REACTIONS (12)
  - ANXIETY [None]
  - BLOOD CHOLESTEROL INCREASED [None]
  - DEPRESSION [None]
  - DYSPEPSIA [None]
  - EAR HAEMORRHAGE [None]
  - FACTOR II DEFICIENCY [None]
  - ISCHAEMIC STROKE [None]
  - LETHARGY [None]
  - PAIN [None]
  - PRESCRIBED OVERDOSE [None]
  - PROTEIN S DEFICIENCY [None]
  - SEBORRHOEIC DERMATITIS [None]
